FAERS Safety Report 9665764 (Version 2)
Quarter: 2013Q4

REPORT INFORMATION
  Report Type: Report from Study
  Country: DE (occurrence: DE)
  Receive Date: 20131104
  Receipt Date: 20131120
  Transmission Date: 20140711
  Serious: Yes (Hospitalization, Other)
  Sender: FDA-Public Use
  Company Number: DE-BAYER-2013-133231

PATIENT
  Age: 57 Year
  Sex: Female

DRUGS (1)
  1. BETAFERON [Suspect]
     Dosage: UNK
     Dates: start: 20100501

REACTIONS (4)
  - Breast cancer female [None]
  - Feeling cold [Recovered/Resolved]
  - Pyrexia [Recovered/Resolved]
  - Vomiting [Recovered/Resolved]
